FAERS Safety Report 14017159 (Version 1)
Quarter: 2017Q3

REPORT INFORMATION
  Report Type: Spontaneous
  Country: AU (occurrence: AU)
  Receive Date: 20170927
  Receipt Date: 20170927
  Transmission Date: 20171128
  Serious: Yes (Hospitalization)
  Sender: FDA-Public Use
  Company Number: AU-MYLANLABS-2017M1059782

PATIENT
  Age: 43 Year
  Sex: Female

DRUGS (4)
  1. MORPHINE [Interacting]
     Active Substance: MORPHINE
     Indication: ANALGESIC THERAPY
     Dosage: SUSTAINED RELEASE
     Route: 065
  2. NALOXONE W/OXYCODONE [Interacting]
     Active Substance: NALOXONE HYDROCHLORIDE\OXYCODONE HYDROCHLORIDE
     Indication: ANALGESIC THERAPY
     Dosage: SUSTAINED RELEASE
     Route: 065
  3. KETAMINE [Concomitant]
     Active Substance: KETAMINE
     Indication: ANALGESIC THERAPY
     Dosage: UNK
     Route: 065
  4. MORPHINE [Suspect]
     Active Substance: MORPHINE
     Indication: ANALGESIC THERAPY
     Dosage: SUSTAINED RELEASE
     Route: 065

REACTIONS (3)
  - Constipation [Unknown]
  - Drug interaction [Recovered/Resolved]
  - Pain [Recovered/Resolved]
